FAERS Safety Report 12548016 (Version 1)
Quarter: 2016Q3

REPORT INFORMATION
  Report Type: Spontaneous
  Country: FR (occurrence: FR)
  Receive Date: 20160712
  Receipt Date: 20160712
  Transmission Date: 20161109
  Serious: Yes (Hospitalization)
  Sender: FDA-Public Use
  Company Number: FR-BAUSCH-BL-2016-016098

PATIENT
  Age: 67 Year
  Sex: Female

DRUGS (5)
  1. INDOCOLLYRE 0.1% COLLYRE [Suspect]
     Active Substance: INDOMETHACIN
     Indication: CATARACT OPERATION
     Route: 047
     Dates: start: 20160606
  2. APROKAM [Suspect]
     Active Substance: CEFUROXIME SODIUM
     Indication: ANTIBIOTIC PROPHYLAXIS
     Dosage: A SINGLE ADMINISTRATION
     Route: 047
     Dates: start: 20160606, end: 20160606
  3. NEOSYNEPHRINE [Suspect]
     Active Substance: PHENYLEPHRINE HYDROCHLORIDE
     Indication: CATARACT OPERATION
     Route: 047
     Dates: start: 20160606
  4. SODIUM CHLORIDE. [Suspect]
     Active Substance: SODIUM CHLORIDE
     Indication: MEDICATION DILUTION
     Route: 047
  5. MYDRIASERT [Suspect]
     Active Substance: PHENYLEPHRINE HYDROCHLORIDE\TROPICAMIDE
     Indication: CATARACT OPERATION
     Route: 047
     Dates: start: 20160606

REACTIONS (1)
  - Corneal oedema [Recovering/Resolving]
